FAERS Safety Report 4271351-9 (Version None)
Quarter: 2004Q1

REPORT INFORMATION
  Report Type: 
  Country: None (occurrence: None)
  Receive Date: 20040115
  Receipt Date: 20031208
  Transmission Date: 20041129
  Serious: No
  Sender: FDA-Public Use
  Company Number: 200311473JP

PATIENT
  Age: 27 Year
  Sex: Female
  Weight: 45 kg

DRUGS (13)
  1. ARAVA [Suspect]
     Indication: RHEUMATOID ARTHRITIS
     Route: 048
     Dates: start: 20031107, end: 20031124
  2. RHEUMATREX [Concomitant]
     Indication: RHEUMATOID ARTHRITIS
     Route: 048
     Dates: end: 20031104
  3. AZULFIDINE [Concomitant]
     Indication: RHEUMATOID ARTHRITIS
     Route: 048
     Dates: end: 20031106
  4. THIOLA [Concomitant]
     Indication: RHEUMATOID ARTHRITIS
     Route: 048
     Dates: end: 20030106
  5. PREDONINE [Concomitant]
     Indication: RHEUMATOID ARTHRITIS
     Route: 048
  6. PREDNISOLONE [Concomitant]
     Indication: RHEUMATOID ARTHRITIS
     Route: 048
  7. ALFAROL [Concomitant]
     Indication: OSTEOPOROSIS
     Route: 048
  8. VOLTAREN - SLOW RELEASE ^CIBA-GEIGY^ [Concomitant]
     Indication: RHEUMATOID ARTHRITIS
     Route: 048
  9. CYTOTEC [Concomitant]
     Indication: ULCER
     Route: 048
  10. LOPEMIN [Concomitant]
     Indication: DIARRHOEA
     Route: 048
     Dates: start: 20031107
  11. TANNALBIN [Concomitant]
     Indication: DIARRHOEA
     Route: 048
     Dates: start: 20031107
  12. LAC B [Concomitant]
     Indication: DIARRHOEA
     Route: 048
     Dates: start: 20031107
  13. NAUZELIN [Concomitant]
     Indication: VOMITING
     Route: 054
     Dates: start: 20031125, end: 20031127

REACTIONS (5)
  - ALANINE AMINOTRANSFERASE INCREASED [None]
  - DIARRHOEA [None]
  - GAMMA-GLUTAMYLTRANSFERASE INCREASED [None]
  - NAUSEA [None]
  - WHITE BLOOD CELL COUNT DECREASED [None]
